FAERS Safety Report 25483591 (Version 1)
Quarter: 2025Q2

REPORT INFORMATION
  Report Type: Spontaneous
  Country: US (occurrence: US)
  Receive Date: 20250626
  Receipt Date: 20250626
  Transmission Date: 20250717
  Serious: No
  Sender: ALMIRALL, LLC
  Company Number: US-ALMIRALL, LLC-2025AQU000015

PATIENT
  Sex: Male

DRUGS (1)
  1. CORDRAN [Suspect]
     Active Substance: FLURANDRENOLIDE
     Indication: Antibiotic prophylaxis
     Route: 065

REACTIONS (3)
  - Wound [Unknown]
  - Off label use [Unknown]
  - Product dose omission issue [Unknown]
